FAERS Safety Report 5453975-6 (Version None)
Quarter: 2007Q3

REPORT INFORMATION
  Report Type: 
  Country: None (occurrence: None)
  Receive Date: 20070917
  Receipt Date: 20070702
  Transmission Date: 20080115
  Serious: Yes (Other)
  Sender: FDA-Public Use
  Company Number: US-ASTRAZENECA-2006UW03273

PATIENT
  Age: 44 Year
  Sex: Female
  Weight: 52.3 kg

DRUGS (9)
  1. SEROQUEL [Suspect]
     Indication: DEPRESSION
     Route: 048
     Dates: start: 20050201
  2. SEROQUEL [Suspect]
     Indication: BIPOLAR DISORDER
     Route: 048
     Dates: start: 20050201
  3. SEROQUEL [Suspect]
     Indication: ANXIETY
     Route: 048
     Dates: start: 20050201
  4. SEROQUEL [Suspect]
     Route: 048
     Dates: start: 20050201
  5. SEROQUEL [Suspect]
     Route: 048
     Dates: start: 20050201
  6. SEROQUEL [Suspect]
     Route: 048
     Dates: start: 20050201
  7. RISPERDAL [Concomitant]
  8. ZYPREXA [Concomitant]
     Dates: start: 20020927, end: 20040430
  9. HYDROCO/APAP [Concomitant]
     Dosage: 7.5-650

REACTIONS (2)
  - DIABETES MELLITUS [None]
  - PANCREATITIS [None]
